FAERS Safety Report 22116703 (Version 2)
Quarter: 2023Q2

REPORT INFORMATION
  Report Type: Spontaneous
  Country: HR (occurrence: HR)
  Receive Date: 20230320
  Receipt Date: 20230410
  Transmission Date: 20230721
  Serious: Yes (Other)
  Sender: FDA-Public Use
  Company Number: HR-BAYER-2023A032240

PATIENT
  Sex: Female
  Weight: 89 kg

DRUGS (1)
  1. STIVARGA [Suspect]
     Active Substance: REGORAFENIB
     Indication: Colorectal cancer metastatic
     Dosage: UNK
     Dates: start: 20220610

REACTIONS (5)
  - Colorectal cancer metastatic [None]
  - Carcinoembryonic antigen increased [None]
  - Carcinoembryonic antigen increased [None]
  - Carcinoembryonic antigen increased [None]
  - Paratracheal lymphadenopathy [None]

NARRATIVE: CASE EVENT DATE: 20221111
